FAERS Safety Report 17840556 (Version 2)
Quarter: 2020Q3

REPORT INFORMATION
  Report Type: Spontaneous
  Country: US (occurrence: US)
  Receive Date: 20200529
  Receipt Date: 20200702
  Transmission Date: 20201103
  Serious: No
  Sender: FDA-Public Use
  Company Number: US-PFIZER INC-2020124939

PATIENT
  Age: 48 Year
  Sex: Female
  Weight: 88 kg

DRUGS (12)
  1. DOCETAXEL. [Suspect]
     Active Substance: DOCETAXEL
     Dosage: 90 MG, CYCLIC (EVERY 3 WEEKS)
     Dates: end: 20120306
  2. TAXOTERE [Suspect]
     Active Substance: DOCETAXEL
     Dosage: 90 MG, CYCLIC (EVERY 3 WEEKS)
     Dates: end: 20120306
  3. CITALOPRAM [Concomitant]
     Active Substance: CITALOPRAM HYDROBROMIDE
     Dosage: UNK
     Dates: start: 20110126, end: 20121217
  4. TAXOTERE [Suspect]
     Active Substance: DOCETAXEL
     Indication: BREAST CANCER FEMALE
     Dosage: 120 MG, CYCLIC (EVERY 3 WEEKS)
     Dates: start: 20110922
  5. METFORMIN [Concomitant]
     Active Substance: METFORMIN HYDROCHLORIDE
     Dosage: UNK
     Dates: start: 20110504, end: 20120927
  6. PARAPLATIN [Concomitant]
     Active Substance: CARBOPLATIN
     Dosage: 620 MG, UNK
  7. NEUPOGEN [Concomitant]
     Active Substance: FILGRASTIM
     Dosage: UNK
     Dates: start: 20111213, end: 20120306
  8. TAXOTERE [Suspect]
     Active Substance: DOCETAXEL
     Dosage: 140 MG, CYCLIC (EVERY 3 WEEKS)
  9. DOCETAXEL. [Suspect]
     Active Substance: DOCETAXEL
     Dosage: 140 MG, CYCLIC (EVERY 3 WEEKS)
  10. PARAPLATIN [Concomitant]
     Active Substance: CARBOPLATIN
     Dosage: 510 MG, UNK
  11. DOCETAXEL. [Suspect]
     Active Substance: DOCETAXEL
     Indication: BREAST CANCER FEMALE
     Dosage: 120 MG, CYCLIC (EVERY 3 WEEKS)
     Dates: start: 20110922
  12. PARAPLATIN [Concomitant]
     Active Substance: CARBOPLATIN
     Indication: CHEMOTHERAPY
     Dosage: 700 MG, UNK

REACTIONS (7)
  - Alopecia [Not Recovered/Not Resolved]
  - Anxiety [Unknown]
  - Hair disorder [Not Recovered/Not Resolved]
  - Hair texture abnormal [Not Recovered/Not Resolved]
  - Madarosis [Not Recovered/Not Resolved]
  - Hair colour changes [Not Recovered/Not Resolved]
  - Depression [Unknown]

NARRATIVE: CASE EVENT DATE: 201212
